FAERS Safety Report 19039575 (Version 4)
Quarter: 2024Q2

REPORT INFORMATION
  Report Type: Other
  Country: AU (occurrence: AU)
  Receive Date: 20210322
  Receipt Date: 20240405
  Transmission Date: 20240716
  Serious: Yes (Other)
  Sender: FDA-Public Use
  Company Number: AU-TOLMAR, INC.-21AU026019

PATIENT
  Age: 81 Year
  Sex: Male

DRUGS (1)
  1. ELIGARD [Suspect]
     Active Substance: LEUPROLIDE ACETATE
     Indication: Prostate cancer
     Dosage: 22.5 MILLIGRAM, Q 3 MONTH
     Route: 058
     Dates: start: 20190909

REACTIONS (8)
  - Pulmonary oedema [Unknown]
  - Asthma [Unknown]
  - Mobility decreased [Unknown]
  - Fall [Not Recovered/Not Resolved]
  - Musculoskeletal chest pain [Unknown]
  - Skin laceration [Unknown]
  - Dyspnoea [Unknown]
  - Limb injury [Unknown]

NARRATIVE: CASE EVENT DATE: 20230610
